FAERS Safety Report 6632338-1 (Version None)
Quarter: 2010Q1

REPORT INFORMATION
  Report Type: 
  Country: None (occurrence: None)
  Receive Date: 20100312
  Receipt Date: 20100304
  Transmission Date: 20100710
  Serious: Yes (Other)
  Sender: FDA-Public Use
  Company Number: B0639180A

PATIENT
  Age: 52 Year
  Sex: Female
  Weight: 60 kg

DRUGS (1)
  1. ZINNAT [Suspect]
     Indication: BRONCHITIS
     Route: 048
     Dates: start: 20100210, end: 20100210

REACTIONS (5)
  - ABDOMINAL PAIN LOWER [None]
  - HYPOTENSION [None]
  - RASH GENERALISED [None]
  - SINUS TACHYCARDIA [None]
  - SYNCOPE [None]
